FAERS Safety Report 8840295 (Version 3)
Quarter: 2013Q1

REPORT INFORMATION
  Report Type: Spontaneous
  Country: US (occurrence: US)
  Receive Date: 20121015
  Receipt Date: 20130102
  Transmission Date: 20140127
  Serious: Yes (Life-Threatening, Hospitalization, Other)
  Sender: FDA-Public Use
  Company Number: US-JNJFOC-20121002582

PATIENT
  Age: 52 None
  Sex: Female
  Weight: 64.41 kg

DRUGS (33)
  1. DURAGESIC [Suspect]
     Indication: FIBROMYALGIA
     Route: 062
     Dates: start: 20120926, end: 20121001
  2. DURAGESIC [Suspect]
     Indication: FIBROMYALGIA
     Route: 062
     Dates: start: 20121001
  3. DURAGESIC [Suspect]
     Indication: FIBROMYALGIA
     Dosage: 75 MCG/HR TWO PATCHES IN 2003
     Route: 062
     Dates: end: 20120922
  4. DURAGESIC [Suspect]
     Indication: FIBROMYALGIA
     Route: 062
     Dates: start: 1997
  5. PERCOCET [Concomitant]
     Indication: PAIN
     Dosage: 10/75/325MG AS NEEDED THREE TIMES DAY/ORAL
     Route: 048
  6. UNKNOWN MEDICATION [Concomitant]
     Route: 065
  7. PREVACID [Concomitant]
     Indication: PRODUCT USED FOR UNKNOWN INDICATION
     Route: 065
  8. REGLAN [Concomitant]
     Indication: PRODUCT USED FOR UNKNOWN INDICATION
     Route: 065
  9. GLYCOPYRROLATE [Concomitant]
     Indication: PRODUCT USED FOR UNKNOWN INDICATION
     Route: 065
  10. PHENERGAN [Concomitant]
     Indication: PRODUCT USED FOR UNKNOWN INDICATION
     Dosage: 4 PRN
     Route: 065
  11. CARAFATE [Concomitant]
     Indication: PRODUCT USED FOR UNKNOWN INDICATION
     Route: 065
  12. ZOFRAN [Concomitant]
     Indication: PRODUCT USED FOR UNKNOWN INDICATION
     Dosage: 1 PRN UP TO 3 DAILY
     Route: 065
  13. AMITIZA [Concomitant]
     Indication: PRODUCT USED FOR UNKNOWN INDICATION
     Dosage: 1-2 PRN
     Route: 065
  14. PARAFON FORTE [Concomitant]
     Indication: PRODUCT USED FOR UNKNOWN INDICATION
     Dosage: 2X4 TIMES A DAY
     Route: 065
  15. LYRICA [Concomitant]
     Indication: PRODUCT USED FOR UNKNOWN INDICATION
     Route: 065
  16. LIDODERM [Concomitant]
     Indication: PRODUCT USED FOR UNKNOWN INDICATION
     Dosage: 12 HOURS ON AN 12 HOURS OFF
     Route: 065
  17. FIORICET [Concomitant]
     Indication: HEADACHE
     Dosage: 50-325 1 PRN
     Route: 065
  18. PERCOCET [Concomitant]
     Indication: PRODUCT USED FOR UNKNOWN INDICATION
     Dosage: ONE EVERY 4 TO 6 HOURS (4 DAILY) JUNE
     Route: 065
  19. FOLIC ACID [Concomitant]
     Route: 065
  20. XYZAL [Concomitant]
     Indication: CHRONIC OBSTRUCTIVE PULMONARY DISEASE
     Route: 065
  21. PRAVASTATIN [Concomitant]
     Indication: CHRONIC OBSTRUCTIVE PULMONARY DISEASE
     Route: 065
  22. ADVAIR [Concomitant]
     Indication: CHRONIC OBSTRUCTIVE PULMONARY DISEASE
     Dosage: 250 MCG-50 MG
     Route: 065
  23. FEMRING [Concomitant]
     Indication: CHRONIC OBSTRUCTIVE PULMONARY DISEASE
     Dosage: 24 HORMONE 3 MONTHS
     Route: 065
  24. CYMBALTA [Concomitant]
     Indication: BIPOLAR DISORDER
     Dosage: 1 AM 1 PM
     Route: 065
  25. ABILIFY [Concomitant]
     Indication: BIPOLAR DISORDER
     Dosage: 1 AM
     Route: 065
  26. LAMICTAL [Concomitant]
     Indication: BIPOLAR DISORDER
     Route: 065
  27. NAMENDA [Concomitant]
     Indication: BIPOLAR DISORDER
     Dosage: 2 HS
     Route: 065
  28. XANAX [Concomitant]
     Indication: BIPOLAR DISORDER
     Route: 065
  29. TRAZODONE [Concomitant]
     Indication: BIPOLAR DISORDER
     Dosage: 2 HS
     Route: 065
  30. CLONAZEPAM [Concomitant]
     Indication: BIPOLAR DISORDER
     Dosage: 2 HS
     Route: 065
  31. ALREX [Concomitant]
     Indication: CHRONIC OBSTRUCTIVE PULMONARY DISEASE
     Route: 047
  32. ALBUTEROL [Concomitant]
     Dosage: 1-2 PUFFS EVERY 4-6 HOURS
     Route: 065
  33. AVELOX [Concomitant]
     Indication: BRONCHITIS
     Route: 065
     Dates: start: 20120919

REACTIONS (11)
  - Hysterectomy [Unknown]
  - Appendicectomy [Unknown]
  - Gallbladder operation [Unknown]
  - Accidental overdose [Recovered/Resolved]
  - Loss of consciousness [Recovered/Resolved]
  - Pain [Recovered/Resolved]
  - Cataract [Unknown]
  - Adverse drug reaction [Recovered/Resolved]
  - Explorative laparotomy [Unknown]
  - Pneumonia [Recovered/Resolved]
  - Ear infection [Recovered/Resolved]
